FAERS Safety Report 9485286 (Version 1)
Quarter: 2013Q3

REPORT INFORMATION
  Report Type: Spontaneous
  Country: US (occurrence: US)
  Receive Date: 20130828
  Receipt Date: 20130828
  Transmission Date: 20140515
  Serious: No
  Sender: FDA-Public Use
  Company Number: US-009507513-1308USA013623

PATIENT
  Sex: Female

DRUGS (2)
  1. CLARITIN [Suspect]
     Indication: PRODUCT USED FOR UNKNOWN INDICATION
     Dosage: UNK, QD
     Route: 048
  2. CLARITIN [Suspect]
     Indication: MEDICAL OBSERVATION

REACTIONS (3)
  - Sinusitis [Unknown]
  - Condition aggravated [Unknown]
  - Drug effect decreased [Unknown]
